FAERS Safety Report 6123853-8 (Version None)
Quarter: 2009Q1

REPORT INFORMATION
  Report Type: 
  Country: None (occurrence: None)
  Receive Date: 20090318
  Receipt Date: 20090318
  Transmission Date: 20090719
  Serious: Yes (Other)
  Sender: FDA-Public Use
  Company Number: None

PATIENT
  Age: 45 Year
  Sex: Male
  Weight: 74.8435 kg

DRUGS (1)
  1. TRAMADOL HCL [Suspect]
     Indication: ARTHRALGIA
     Dosage: 2 TABLETS 3 X A DAY
     Dates: start: 20030101, end: 20090302

REACTIONS (6)
  - CHILLS [None]
  - DIARRHOEA [None]
  - DRUG DEPENDENCE [None]
  - INSOMNIA [None]
  - NIGHT SWEATS [None]
  - PYREXIA [None]
